FAERS Safety Report 12730726 (Version 1)
Quarter: 2016Q3

REPORT INFORMATION
  Report Type: Spontaneous
  Country: US (occurrence: US)
  Receive Date: 20160910
  Receipt Date: 20160910
  Transmission Date: 20161109
  Serious: Yes (Other)
  Sender: FDA-Public Use
  Company Number: US-INVENTIA-000136

PATIENT
  Age: 10 Year
  Sex: Male

DRUGS (2)
  1. METFORMIN [Suspect]
     Active Substance: METFORMIN HYDROCHLORIDE
     Indication: METABOLIC SYNDROME
  2. RISPERIDONE. [Concomitant]
     Active Substance: RISPERIDONE

REACTIONS (5)
  - Rash pruritic [Recovered/Resolved]
  - Urticaria [Recovered/Resolved]
  - Rash erythematous [Recovered/Resolved]
  - Flushing [Recovered/Resolved]
  - Type I hypersensitivity [Recovered/Resolved]
